FAERS Safety Report 14802280 (Version 1)
Quarter: 2018Q2

REPORT INFORMATION
  Report Type: Spontaneous
  Country: US (occurrence: US)
  Receive Date: 20180424
  Receipt Date: 20180424
  Transmission Date: 20180711
  Serious: No
  Sender: FDA-Public Use
  Company Number: US-PURDUE-USA-2018-0142717

PATIENT
  Age: 60 Year
  Sex: Male

DRUGS (3)
  1. OXYCONTIN [Suspect]
     Active Substance: OXYCODONE HYDROCHLORIDE
     Indication: BACK PAIN
     Dosage: 30 MG, BID
     Route: 048
     Dates: start: 20180112, end: 20180113
  2. OXYCONTIN [Suspect]
     Active Substance: OXYCODONE HYDROCHLORIDE
     Dosage: 30 MG, BID
     Route: 048
     Dates: start: 201705, end: 20180111
  3. OXYCODONE HYDROCHLORIDE. [Concomitant]
     Active Substance: OXYCODONE HYDROCHLORIDE
     Indication: BACK PAIN
     Dosage: 15 MG, QID
     Route: 048

REACTIONS (7)
  - Insomnia [Recovered/Resolved]
  - Drug withdrawal syndrome [Recovered/Resolved]
  - Hypertension [Recovered/Resolved]
  - Yawning [Recovered/Resolved]
  - Medication residue present [Recovered/Resolved]
  - Rhinorrhoea [Recovered/Resolved]
  - Drug effect incomplete [Unknown]

NARRATIVE: CASE EVENT DATE: 20180112
